FAERS Safety Report 8399693-6 (Version None)
Quarter: 2012Q2

REPORT INFORMATION
  Report Type: 
  Country: None (occurrence: None)
  Receive Date: 20120531
  Receipt Date: 20120529
  Transmission Date: 20120825
  Serious: Yes (Other)
  Sender: FDA-Public Use
  Company Number: US-BAYER-200928665NA

PATIENT
  Age: 37 Year
  Sex: Female
  Weight: 74.83 kg

DRUGS (1)
  1. MIRENA [Suspect]
     Indication: CONTRACEPTION
     Dosage: 20 ?G/D, CONT
     Route: 015
     Dates: start: 20090101

REACTIONS (9)
  - DEVICE DISLOCATION [None]
  - BACK PAIN [None]
  - PAIN IN EXTREMITY [None]
  - DEVICE EXPULSION [None]
  - PROCEDURAL PAIN [None]
  - HYPOAESTHESIA [None]
  - UTERINE CYST [None]
  - PREMATURE MENOPAUSE [None]
  - OVARIAN MASS [None]
